FAERS Safety Report 8475172-2 (Version None)
Quarter: 2012Q2

REPORT INFORMATION
  Report Type: 
  Country: None (occurrence: None)
  Receive Date: 20120628
  Receipt Date: 20120619
  Transmission Date: 20120825
  Serious: Yes (Disabling, Other)
  Sender: FDA-Public Use
  Company Number: FR-ASTRAZENECA-2012SE31745

PATIENT
  Sex: Female
  Weight: 46 kg

DRUGS (9)
  1. PRAVASTATIN [Concomitant]
     Indication: HYPERCHOLESTEROLAEMIA
     Route: 048
  2. VANDETANIB [Suspect]
     Route: 048
     Dates: start: 20071101, end: 20101101
  3. LEVOTHYROXINE SODIUM [Concomitant]
     Indication: HYPOTHYROIDISM
     Route: 048
  4. VANDETANIB [Suspect]
     Indication: THYROID CANCER
     Route: 048
     Dates: start: 20070228, end: 20071101
  5. POTASSIUM CHLORIDE [Concomitant]
     Indication: HYPOKALAEMIA
     Route: 048
  6. VANDETANIB [Suspect]
     Route: 048
     Dates: start: 20101214, end: 20110620
  7. UN-ALPHA [Concomitant]
     Indication: MINERAL SUPPLEMENTATION
     Route: 048
  8. NICARDIPINE HYDROCHLORIDE [Concomitant]
     Indication: HYPERTENSION
     Route: 048
  9. VANDETANIB [Suspect]
     Route: 048
     Dates: end: 20120516

REACTIONS (2)
  - CORNEAL DEPOSITS [None]
  - VISUAL ACUITY REDUCED [None]
